FAERS Safety Report 15123713 (Version 1)
Quarter: 2018Q3

REPORT INFORMATION
  Report Type: Report from Study
  Country: None (occurrence: BR)
  Receive Date: 20180710
  Receipt Date: 20180710
  Transmission Date: 20181010
  Serious: Yes (Hospitalization, Other)
  Sender: FDA-Public Use
  Company Number: BR-ABBVIE-18K-020-2411701-00

PATIENT
  Sex: Female
  Weight: 73 kg

DRUGS (1)
  1. HUMIRA [Suspect]
     Active Substance: ADALIMUMAB
     Indication: RHEUMATOID ARTHRITIS
     Route: 058
     Dates: start: 2013, end: 20170101

REACTIONS (14)
  - Limb injury [Recovering/Resolving]
  - Anal haemorrhage [Recovered/Resolved]
  - Hair injury [Recovering/Resolving]
  - Hospitalisation [Unknown]
  - Immunodeficiency [Recovered/Resolved]
  - Head injury [Recovering/Resolving]
  - Arthralgia [Not Recovered/Not Resolved]
  - Cystitis bacterial [Recovered/Resolved]
  - Breast cancer female [Recovering/Resolving]
  - Buttock injury [Recovering/Resolving]
  - Glucose tolerance impaired [Unknown]
  - Hypersensitivity [Unknown]
  - Epistaxis [Recovered/Resolved]
  - Face injury [Recovering/Resolving]

NARRATIVE: CASE EVENT DATE: 201610
